FAERS Safety Report 18273166 (Version 1)
Quarter: 2020Q3

REPORT INFORMATION
  Report Type: Spontaneous
  Country: US (occurrence: US)
  Receive Date: 20200916
  Receipt Date: 20200916
  Transmission Date: 20201103
  Serious: Yes (Hospitalization)
  Sender: FDA-Public Use
  Company Number: US-PFIZER INC-2020353703

PATIENT
  Age: 56 Year
  Sex: Female

DRUGS (1)
  1. VANCOMYCIN HCL [Suspect]
     Active Substance: VANCOMYCIN HYDROCHLORIDE
     Dosage: UNK

REACTIONS (5)
  - Lymphoedema [Unknown]
  - Arthropathy [Unknown]
  - Pulmonary oedema [Unknown]
  - Dyspnoea [Unknown]
  - Muscle tightness [Unknown]
